FAERS Safety Report 9867928 (Version 1)
Quarter: 2014Q1

REPORT INFORMATION
  Report Type: Spontaneous
  Country: US (occurrence: None)
  Receive Date: 20140203
  Receipt Date: 20140203
  Transmission Date: 20141002
  Serious: No
  Sender: FDA-Public Use
  Company Number: None

PATIENT
  Sex: 0

DRUGS (1)
  1. LORTAB [Suspect]
     Dosage: ELIXIR
     Route: 048

REACTIONS (2)
  - Product formulation issue [None]
  - Circumstance or information capable of leading to medication error [None]
